FAERS Safety Report 16031071 (Version 1)
Quarter: 2019Q1

REPORT INFORMATION
  Report Type: Spontaneous
  Country: NL (occurrence: NL)
  Receive Date: 20190304
  Receipt Date: 20190304
  Transmission Date: 20190418
  Serious: Yes (Other)
  Sender: FDA-Public Use
  Company Number: NL-PFIZER INC-2019091249

PATIENT
  Age: 62 Year
  Sex: Female
  Weight: 70 kg

DRUGS (6)
  1. CALCIUM [Concomitant]
     Active Substance: CALCIUM
     Dosage: UNK
     Route: 048
  2. PERSANTIN [Concomitant]
     Active Substance: DIPYRIDAMOLE
     Dosage: UNK
  3. VITAMIN D3 [Concomitant]
     Active Substance: CHOLECALCIFEROL
     Dosage: UNK
  4. MULTIVITAMIN [VITAMINS NOS] [Concomitant]
     Dosage: UNK
  5. AZITHROMYCIN ANHYDROUS. [Suspect]
     Active Substance: AZITHROMYCIN ANHYDROUS
     Indication: BRONCHIECTASIS
     Dosage: 500 MG, 3X/WEEK
     Route: 048
     Dates: start: 20160201
  6. ASCAL CARDIO [Concomitant]
     Active Substance: CARBASPIRIN
     Dosage: UNK

REACTIONS (3)
  - Basal cell carcinoma [Unknown]
  - Keratoacanthoma [Unknown]
  - Photosensitivity reaction [Unknown]

NARRATIVE: CASE EVENT DATE: 2016
